FAERS Safety Report 23728747 (Version 1)
Quarter: 2024Q2

REPORT INFORMATION
  Report Type: Spontaneous
  Country: US (occurrence: US)
  Receive Date: 20240410
  Receipt Date: 20240410
  Transmission Date: 20240716
  Serious: Yes (Life-Threatening, Hospitalization, Other)
  Sender: FDA-Public Use
  Company Number: US-FreseniusKabi-FK202406019

PATIENT
  Age: 45 Year
  Sex: Female

DRUGS (2)
  1. OXALIPLATIN [Suspect]
     Active Substance: OXALIPLATIN
     Indication: Adenocarcinoma gastric
  2. CAPECITABINE [Suspect]
     Active Substance: CAPECITABINE
     Indication: Adenocarcinoma gastric
     Dosage: STARTED ON CAPECITABINE-OXALIPLATIN CHEMOTHERAPY ONE WEEK BEFORE PRESENTING TO THE EMERGENCY DEPARTM

REACTIONS (2)
  - Cardiac arrest [Recovering/Resolving]
  - Cardiogenic shock [Recovering/Resolving]
